FAERS Safety Report 10269865 (Version 1)
Quarter: 2014Q2

REPORT INFORMATION
  Report Type: Spontaneous
  Country: US (occurrence: None)
  Receive Date: 20140625
  Receipt Date: 20140625
  Transmission Date: 20141212
  Serious: Yes (Life-Threatening, Hospitalization)
  Sender: FDA-Public Use
  Company Number: FK201402450

PATIENT
  Age: 66 Year
  Sex: Female

DRUGS (17)
  1. KETOROLAC TROMETHAMINE [Suspect]
     Indication: INJECTION SITE PAIN
     Route: 030
  2. LIDOCAINE 1% [Suspect]
     Indication: LOCAL ANAESTHESIA
     Dosage: UNKNOWN, LOCAL SKIN INFILTRATION
  3. NORMAL SALINE [Suspect]
     Indication: EPIDURAL INJECTION
     Route: 008
  4. METHYLPREDNISOLONE ACETATE [Suspect]
     Indication: EPIDURAL INJECTION
     Route: 008
  5. FLUOXETINE (FLUOXETINE) [Suspect]
     Indication: PRODUCT USED FOR UNKNOWN INDICATION
     Route: 048
  6. FISH OIL (FISH OIL) [Suspect]
     Indication: PRODUCT USED FOR UNKNOWN INDICATION
  7. MULTIVITAMIN (VIGRAN) (ERGOCALCIFEOL, ASCORBIC ACID, PYRIDOXINE HYDROCHLORIDE, THIAMINE HYDROCHLORIDE, RETINOL, RIBOFLAVIN, NICOTINAMIDE, CALCIUM PANTHOTHENATE) [Suspect]
     Indication: PRODUCT USED FOR UNKNOWN INDICATION
  8. LEVOTHYROXINE [Concomitant]
  9. ATROVASTATIN [Concomitant]
  10. SEROQUEL (QUETIAPINE FUMARATE) [Concomitant]
  11. CARVEDILOL [Concomitant]
  12. FERROUS SULFATE [Concomitant]
  13. GABAPENTIN [Concomitant]
  14. DOCUSATE [Concomitant]
  15. FENTANYL PATCH (FENTANYL) [Concomitant]
  16. CARISOPRODOL [Concomitant]
  17. OMEPRAZOLE [Concomitant]

REACTIONS (4)
  - Spinal epidural haematoma [None]
  - Quadriplegia [None]
  - Sensory loss [None]
  - Drug interaction [None]
